FAERS Safety Report 8471643 (Version 2)
Quarter: 2012Q4

REPORT INFORMATION
  Report Type: Report from Study
  Country: JP (occurrence: JP)
  Receive Date: 20120322
  Receipt Date: 20120924
  Transmission Date: 20130627
  Serious: Yes (Death, Life-Threatening)
  Sender: FDA-Public Use
  Company Number: JP-GENZYME-THYM-1003171

PATIENT
  Age: 17 Year
  Sex: Male
  Weight: 48 kg

DRUGS (11)
  1. THYMOGLOBULIN [Suspect]
     Indication: ACUTE GRAFT VERSUS HOST DISEASE
     Dosage: 125 mg, qd
     Route: 042
     Dates: start: 20091214, end: 20091214
  2. THYMOGLOBULIN [Suspect]
     Dosage: 50 mg, qd
     Route: 042
     Dates: start: 20091221, end: 20091221
  3. AMIKACIN SULFATE [Concomitant]
     Indication: INFECTION PROPHYLAXIS
     Dosage: UNK
     Route: 065
     Dates: start: 20091214, end: 20091214
  4. CICLOSPORIN [Concomitant]
     Indication: PROPHYLAXIS
     Dosage: UNK
     Route: 065
     Dates: start: 20091228, end: 20100101
  5. SODIUM BICARBONATE [Concomitant]
     Indication: RENAL FAILURE
     Dosage: UNK
     Route: 065
     Dates: start: 20100110, end: 20100123
  6. TACROLIMUS [Concomitant]
     Indication: BONE MARROW CONDITIONING REGIMEN
     Dosage: UNK
     Route: 065
     Dates: start: 20091020, end: 20091219
  7. MYCOPHENOLATE MOFETIL [Concomitant]
     Indication: ACUTE GRAFT VERSUS HOST DISEASE
     Dosage: UNK
     Route: 065
     Dates: start: 20091202, end: 20091224
  8. CEFOPERAZONE SODIUM [Concomitant]
     Indication: INFECTION PROPHYLAXIS
     Dosage: UNK
     Route: 065
     Dates: start: 20091214, end: 20100114
  9. CARBENIN [Concomitant]
     Indication: INFECTION PROPHYLAXIS
     Dosage: UNK
     Route: 065
     Dates: start: 20091214, end: 20091216
  10. CEFTAZIDIME [Concomitant]
     Indication: INFECTION PROPHYLAXIS
     Dosage: UNK
     Route: 065
     Dates: start: 20091214, end: 20091214
  11. ACICLOVIR [Concomitant]
     Indication: INFECTION PROPHYLAXIS
     Dosage: UNK
     Route: 065
     Dates: start: 20091214, end: 20100104

REACTIONS (9)
  - Venoocclusive liver disease [Fatal]
  - Cardiac failure [Recovered/Resolved]
  - Renal failure [Fatal]
  - Haemorrhage [Fatal]
  - Ascites [Fatal]
  - Gastrointestinal oedema [Fatal]
  - C-reactive protein increased [Recovered/Resolved]
  - Diarrhoea [Fatal]
  - Febrile neutropenia [Fatal]
